FAERS Safety Report 9165535 (Version 1)
Quarter: 2013Q1

REPORT INFORMATION
  Report Type: Spontaneous
  Country: US (occurrence: None)
  Receive Date: 20130314
  Receipt Date: 20130314
  Transmission Date: 20140127
  Serious: No
  Sender: FDA-Public Use
  Company Number: None

PATIENT
  Age: 75 Year
  Sex: Female
  Weight: 85.28 kg

DRUGS (1)
  1. REGLAN. - IN A GEL PAK [Suspect]
     Indication: GASTROINTESTINAL DISORDER
     Dosage: ASK METH HOSP THE DOCTOR SHOVED IT IN MY MOUTH
     Route: 048
     Dates: start: 20130119

REACTIONS (2)
  - Abdominal pain [None]
  - Abdominal pain upper [None]
